FAERS Safety Report 14145100 (Version 1)
Quarter: 2017Q4

REPORT INFORMATION
  Report Type: Other
  Country: FR (occurrence: FR)
  Receive Date: 20171031
  Receipt Date: 20171031
  Transmission Date: 20180321
  Serious: Yes (Death, Other)
  Sender: FDA-Public Use
  Company Number: FR-VELOXIS PHARMACEUTICALS-2032827

PATIENT
  Age: 17 Year
  Sex: Female
  Weight: 40 kg

DRUGS (4)
  1. ENVARSUS XR [Suspect]
     Active Substance: TACROLIMUS
     Indication: LUNG TRANSPLANT
  2. MYCOPHENOLATE MOFETIL. [Suspect]
     Active Substance: MYCOPHENOLATE MOFETIL
  3. VORICONAZOLE. [Suspect]
     Active Substance: VORICONAZOLE
  4. CYCLOSPORINE. [Suspect]
     Active Substance: CYCLOSPORINE
     Route: 051

REACTIONS (3)
  - Pneumonia [Fatal]
  - Pneumonia bacterial [Fatal]
  - Intentional product use issue [Unknown]
